FAERS Safety Report 24394097 (Version 1)
Quarter: 2024Q4

REPORT INFORMATION
  Report Type: Report from Study
  Country: IT (occurrence: IT)
  Receive Date: 20241003
  Receipt Date: 20241003
  Transmission Date: 20250114
  Serious: Yes (Hospitalization)
  Sender: PFIZER
  Company Number: None

PATIENT
  Age: 7 Month
  Sex: Male
  Weight: 7 kg

DRUGS (4)
  1. IDARUBICIN HYDROCHLORIDE [Suspect]
     Active Substance: IDARUBICIN HYDROCHLORIDE
     Dosage: FREQ:24 H;2.5 MG/DAY FOR THREE DAYS
     Route: 042
     Dates: start: 20240903, end: 20240905
  2. GANCICLOVIR SODIUM [Suspect]
     Active Substance: GANCICLOVIR SODIUM
     Dosage: FREQ:12 H;35 MG TWICE DAILY FOR 15 DAYS
     Route: 042
     Dates: start: 20240905, end: 20240920
  3. ETOPOSIDE [Suspect]
     Active Substance: ETOPOSIDE
     Dosage: FREQ:24 H;25 MG DAILY FOR 5 DAYS
     Route: 042
     Dates: start: 20240903, end: 20240907
  4. CYTARABINE [Suspect]
     Active Substance: CYTARABINE
     Dosage: FREQ:24 H;45 MG DAILY FOR 7 DAYS IN I.C.
     Route: 042
     Dates: start: 20240903, end: 20240909

REACTIONS (1)
  - Hyperbilirubinaemia [Unknown]

NARRATIVE: CASE EVENT DATE: 20240920
